FAERS Safety Report 7437738-8 (Version None)
Quarter: 2011Q2

REPORT INFORMATION
  Report Type: 
  Country: None (occurrence: None)
  Receive Date: 20110426
  Receipt Date: 20110418
  Transmission Date: 20111010
  Serious: Yes (Hospitalization)
  Sender: FDA-Public Use
  Company Number: US-ROCHE-764265

PATIENT
  Sex: Female
  Weight: 101.5 kg

DRUGS (5)
  1. METHOTREXATE [Concomitant]
     Dates: start: 20100510
  2. TOCILIZUMAB [Suspect]
     Indication: RHEUMATOID ARTHRITIS
     Dosage: LAST DOSE PRIOR TO SAE: 24 FEB 2011. PERMANENTLY DISCONTINUED.
     Route: 042
     Dates: start: 20101007, end: 20110224
  3. IMITREX [Concomitant]
     Dosage: DOSING FREQUENCY: AS NECESSARY
     Dates: start: 20100907
  4. FOLIC ACID [Concomitant]
     Dates: start: 20100510
  5. CELEBREX [Concomitant]
     Dates: start: 20110221

REACTIONS (1)
  - CHEST PAIN [None]
